FAERS Safety Report 9334600 (Version 2)
Quarter: 2013Q2

REPORT INFORMATION
  Report Type: Spontaneous
  Country: US (occurrence: US)
  Receive Date: 20130606
  Receipt Date: 20130611
  Transmission Date: 20140414
  Serious: Yes (Hospitalization, Other)
  Sender: FDA-Public Use
  Company Number: US-BAXTER-2013BAX020491

PATIENT
  Age: 56 Year
  Sex: Male

DRUGS (4)
  1. DIANEAL LOW CALCIUM [Suspect]
     Indication: PERITONEAL DIALYSIS
     Route: 033
  2. DIANEAL LOW CALCIUM [Suspect]
     Indication: PERITONEAL DIALYSIS
     Route: 033
  3. DIANEAL LOW CALCIUM (ULTRABAG) [Suspect]
     Indication: PERITONEAL DIALYSIS
     Route: 033
  4. WARFARIN [Suspect]
     Indication: ATRIAL FIBRILLATION
     Route: 065

REACTIONS (5)
  - Atrial fibrillation [Unknown]
  - Angina pectoris [Unknown]
  - Myocardial fibrosis [Unknown]
  - Oesophageal haemorrhage [Unknown]
  - Cerebrovascular accident [Recovering/Resolving]
